FAERS Safety Report 9869183 (Version 2)
Quarter: 2014Q1

REPORT INFORMATION
  Report Type: Spontaneous
  Country: US (occurrence: US)
  Receive Date: 20140205
  Receipt Date: 20140331
  Transmission Date: 20141002
  Serious: Yes (Other)
  Sender: FDA-Public Use
  Company Number: US-BRISTOL-MYERS SQUIBB COMPANY-20082392

PATIENT
  Age: 78 Year
  Sex: Male

DRUGS (4)
  1. ELIQUIS [Suspect]
     Dates: start: 20130920
  2. DIGOXIN [Suspect]
  3. CARDIZEM [Concomitant]
     Dates: start: 20131226
  4. TIKOSYN [Concomitant]
     Dates: start: 201311

REACTIONS (2)
  - Atrial fibrillation [Unknown]
  - Blood creatinine increased [Unknown]
